FAERS Safety Report 4330853-7 (Version None)
Quarter: 2004Q1

REPORT INFORMATION
  Report Type: 
  Country: None (occurrence: None)
  Receive Date: 20040331
  Receipt Date: 20040319
  Transmission Date: 20041129
  Serious: Yes (Death, Hospitalization, Other)
  Sender: FDA-Public Use
  Company Number: HQWYE580728OCT03

PATIENT
  Age: 63 Year
  Sex: Female

DRUGS (8)
  1. LEUCOVORIN CALCIUM (LEUCOVORIN CALCIUM, INJECTION,) [Suspect]
     Indication: COLORECTAL CANCER
     Dosage: SEE IMAGE
     Route: 042
     Dates: start: 20030903, end: 20030904
  2. LEUCOVORIN CALCIUM (LEUCOVORIN CALCIUM, INJECTION,) [Suspect]
     Indication: COLORECTAL CANCER
     Dosage: SEE IMAGE
     Route: 042
     Dates: start: 20030509
  3. FLUOROURACIL [Suspect]
     Indication: COLORECTAL CANCER
     Dosage: SEE IMAGE
     Route: 042
     Dates: start: 20030902, end: 20030904
  4. FLUOROURACIL [Suspect]
     Indication: COLORECTAL CANCER
     Dosage: SEE IMAGE
     Route: 042
     Dates: start: 20030509
  5. CETUXIMAB (CETUXIMAB,) [Suspect]
     Indication: COLORECTAL CANCER
     Dosage: SEE IMAGE
     Route: 042
     Dates: start: 20030916, end: 20030916
  6. CETUXIMAB (CETUXIMAB,) [Suspect]
     Indication: COLORECTAL CANCER
     Dosage: SEE IMAGE
     Route: 042
     Dates: start: 20030509
  7. OXALIPLATIN [Suspect]
     Indication: COLORECTAL CANCER
     Dosage: SEE IMAGE
     Route: 042
     Dates: start: 20030916, end: 20030916
  8. OXALIPLATIN [Suspect]
     Indication: COLORECTAL CANCER
     Dosage: SEE IMAGE
     Route: 042
     Dates: start: 20030509

REACTIONS (16)
  - ADENOCARCINOMA [None]
  - CACHEXIA [None]
  - CATHETER RELATED COMPLICATION [None]
  - COLORECTAL CANCER METASTATIC [None]
  - INTERSTITIAL LUNG DISEASE [None]
  - MALIGNANT NEOPLASM PROGRESSION [None]
  - NEUTROPHIL COUNT DECREASED [None]
  - OVARIAN ADENOMA [None]
  - PNEUMONIA [None]
  - PNEUMONITIS [None]
  - PULMONARY EMBOLISM [None]
  - PULMONARY HYPERTENSION [None]
  - RENAL INFARCT [None]
  - RESPIRATORY DISTRESS [None]
  - SPLENIC INFARCTION [None]
  - VENTRICULAR HYPERTROPHY [None]
